FAERS Safety Report 9639523 (Version 2)
Quarter: 2013Q4

REPORT INFORMATION
  Report Type: Spontaneous
  Country: US (occurrence: US)
  Receive Date: 20131023
  Receipt Date: 20131111
  Transmission Date: 20140711
  Serious: Yes (Other)
  Sender: FDA-Public Use
  Company Number: US-AMGEN-USASP2013073875

PATIENT
  Age: 32 Year
  Sex: Female
  Weight: 58.96 kg

DRUGS (8)
  1. ENBREL [Suspect]
     Indication: JUVENILE IDIOPATHIC ARTHRITIS
     Dosage: 50 MG, QWK
     Route: 058
  2. NAPROXEN [Concomitant]
     Dosage: 500 MG, UNK
  3. FISH OIL [Concomitant]
     Dosage: UNK
  4. MULTIVITAMINS, PLAIN [Concomitant]
     Dosage: UNK
  5. CALCIUM D                          /00944201/ [Concomitant]
     Dosage: UNK
  6. FOLIC ACID [Concomitant]
     Dosage: UNK
  7. ALEVE [Concomitant]
     Dosage: UNK
  8. CORTICOSTEROIDS [Concomitant]
     Dosage: UNK

REACTIONS (3)
  - Hip arthroplasty [Unknown]
  - Musculoskeletal stiffness [Unknown]
  - Arthralgia [Unknown]
